FAERS Safety Report 23492777 (Version 1)
Quarter: 2024Q1

REPORT INFORMATION
  Report Type: Report from Study
  Country: US (occurrence: US)
  Receive Date: 20240207
  Receipt Date: 20240207
  Transmission Date: 20240410
  Serious: No
  Sender: FDA-Public Use
  Company Number: US-ORG100014127-2022001156

PATIENT
  Age: 65 Year
  Sex: Male

DRUGS (6)
  1. LYSODREN [Suspect]
     Active Substance: MITOTANE
     Indication: Adrenal gland cancer
     Dosage: 05 TABLETS TWO TIMES DAILY
     Route: 048
     Dates: start: 20220927
  2. HYDRALAZINE [Concomitant]
     Active Substance: HYDRALAZINE HYDROCHLORIDE
     Indication: Product used for unknown indication
  3. Hydrocort tab 5 mg [Concomitant]
     Indication: Product used for unknown indication
  4. LOSARTAN POT TAB 100MG [Concomitant]
     Indication: Product used for unknown indication
  5. MELOXICAM [Concomitant]
     Active Substance: MELOXICAM
     Indication: Product used for unknown indication
  6. REPATHA SURE INJ 140MG/ML [Concomitant]
     Indication: Product used for unknown indication
     Dosage: INJ 140MG/ML

REACTIONS (3)
  - Balance disorder [Not Recovered/Not Resolved]
  - Fatigue [Not Recovered/Not Resolved]
  - Nausea [Not Recovered/Not Resolved]
